FAERS Safety Report 6008137-0 (Version None)
Quarter: 2008Q4

REPORT INFORMATION
  Report Type: 
  Country: None (occurrence: None)
  Receive Date: 20081217
  Receipt Date: 20080715
  Transmission Date: 20090506
  Serious: No
  Sender: FDA-Public Use
  Company Number: US-ASTRAZENECA-2008UW14148

PATIENT
  Age: 77 Year
  Sex: Female
  Weight: 97.5 kg

DRUGS (3)
  1. CRESTOR [Suspect]
     Dosage: 10 MG
     Route: 048
     Dates: start: 20080711
  2. DIOVAN [Concomitant]
  3. METOPROLOL TARTRATE [Concomitant]
     Route: 048

REACTIONS (1)
  - CHEST PAIN [None]
